FAERS Safety Report 8748608 (Version 2)
Quarter: 2012Q4

REPORT INFORMATION
  Report Type: 
  Country: TR (occurrence: TR)
  Receive Date: 20120827
  Receipt Date: 20120829
  Transmission Date: 20130627
  Serious: Yes (Death)
  Sender: FDA-Public Use
  Company Number: TR-ROCHE-1107638

PATIENT
  Sex: Female

DRUGS (9)
  1. LUCENTIS [Suspect]
     Indication: AGE-RELATED MACULAR DEGENERATION
     Dosage: most recent dose: 09 mar 2012
     Route: 050
     Dates: start: 201006
  2. LUCENTIS [Suspect]
     Route: 050
     Dates: start: 201007
  3. LUCENTIS [Suspect]
     Route: 050
     Dates: start: 201008
  4. LUCENTIS [Suspect]
     Route: 050
     Dates: start: 201109
  5. LUCENTIS [Suspect]
     Route: 050
     Dates: start: 20111102
  6. LUCENTIS [Suspect]
     Route: 050
     Dates: start: 20120309
  7. HYZAAR [Concomitant]
  8. PROPRANOLOL HYDROCHLORIDE [Concomitant]
  9. SEMPREX [Concomitant]

REACTIONS (1)
  - Death [Fatal]
